FAERS Safety Report 6430944-0 (Version None)
Quarter: 2009Q4

REPORT INFORMATION
  Report Type: 
  Country: None (occurrence: None)
  Receive Date: 20091104
  Receipt Date: 20091028
  Transmission Date: 20100525
  Serious: Yes (Hospitalization)
  Sender: FDA-Public Use
  Company Number: 2009-04501

PATIENT
  Age: 67 Year
  Sex: Female
  Weight: 79 kg

DRUGS (3)
  1. VELCADE [Suspect]
     Indication: ACUTE MYELOID LEUKAEMIA
     Dosage: 1.3 MG/M2, IV BOLUS
     Route: 040
     Dates: start: 20090613, end: 20090914
  2. DAUNORUBICIN HCL [Suspect]
     Indication: ACUTE MYELOID LEUKAEMIA
     Dosage: 60 MG/M2, INTRAVENOUS
     Route: 042
     Dates: start: 20090613
  3. CYTARABINE [Suspect]
     Indication: ACUTE MYELOID LEUKAEMIA
     Dosage: 100 MG/M2, INTRAVENOUS
     Route: 042
     Dates: start: 20090613, end: 20090908

REACTIONS (14)
  - ACIDOSIS [None]
  - BLOOD CREATININE INCREASED [None]
  - CELLULITIS [None]
  - DECREASED APPETITE [None]
  - FATIGUE [None]
  - FEBRILE NEUTROPENIA [None]
  - GROIN ABSCESS [None]
  - HAEMOGLOBIN DECREASED [None]
  - HYPOTENSION [None]
  - NECROSIS [None]
  - PLATELET COUNT DECREASED [None]
  - PSEUDOMONAS INFECTION [None]
  - SEPSIS [None]
  - URINARY TRACT INFECTION ENTEROCOCCAL [None]
